FAERS Safety Report 12211710 (Version 1)
Quarter: 2016Q1

REPORT INFORMATION
  Report Type: Spontaneous
  Country: US (occurrence: US)
  Receive Date: 20160325
  Receipt Date: 20160325
  Transmission Date: 20160526
  Serious: No
  Sender: FDA-Public Use
  Company Number: US-BAYER-2016-048374

PATIENT
  Age: 68 Year
  Sex: Female
  Weight: 102.4 kg

DRUGS (3)
  1. CLARITIN [Suspect]
     Active Substance: LORATADINE
     Indication: SEASONAL ALLERGY
     Dosage: 1 DF, ONCE
     Route: 048
     Dates: start: 20160309, end: 20160309
  2. CLARITIN [Suspect]
     Active Substance: LORATADINE
     Indication: NASAL CONGESTION
  3. CLARITIN [Suspect]
     Active Substance: LORATADINE
     Indication: HEADACHE

REACTIONS (3)
  - Nasal congestion [Recovered/Resolved]
  - Product use issue [None]
  - Headache [Recovered/Resolved]

NARRATIVE: CASE EVENT DATE: 20160309
